FAERS Safety Report 21057592 (Version 1)
Quarter: 2022Q3

REPORT INFORMATION
  Report Type: Spontaneous
  Country: CA (occurrence: CA)
  Receive Date: 20220708
  Receipt Date: 20220708
  Transmission Date: 20221026
  Serious: Yes (Other)
  Sender: FDA-Public Use
  Company Number: CA-SUN PHARMACEUTICAL INDUSTRIES LTD-2022R1-343432

PATIENT
  Sex: Female
  Weight: 1.69 kg

DRUGS (4)
  1. PREDNISONE [Suspect]
     Active Substance: PREDNISONE
     Indication: Steroid therapy
     Dosage: 112.5 MILLIGRAM
     Route: 064
  2. IPILIMUMAB [Suspect]
     Active Substance: IPILIMUMAB
     Indication: Immunosuppression
     Dosage: 3 MILLIGRAM/KILOGRAM
     Route: 064
  3. NIVOLUMAB [Suspect]
     Active Substance: NIVOLUMAB
     Indication: Immunosuppression
     Dosage: 1 MILLIGRAM/KILOGRAM
     Route: 064
  4. SOLU-MEDROL [Suspect]
     Active Substance: METHYLPREDNISOLONE SODIUM SUCCINATE
     Indication: Product used for unknown indication
     Dosage: 2 MILLIGRAM/KILOGRAM
     Route: 064

REACTIONS (3)
  - Foetal exposure during pregnancy [Unknown]
  - Premature baby [Unknown]
  - Low birth weight baby [Unknown]
